FAERS Safety Report 13032918 (Version 1)
Quarter: 2016Q4

REPORT INFORMATION
  Report Type: Spontaneous
  Country: US (occurrence: US)
  Receive Date: 20161215
  Receipt Date: 20161215
  Transmission Date: 20170207
  Serious: No
  Sender: FDA-Public Use
  Company Number: US-BION-20160550

PATIENT
  Age: 68 Year
  Sex: Female
  Weight: 72.57 kg

DRUGS (6)
  1. NEXIUM [Concomitant]
     Active Substance: ESOMEPRAZOLE MAGNESIUM
  2. LUMIGAN [Concomitant]
     Active Substance: BIMATOPROST
  3. ERGOCALCIFEROL CAPSULES [Suspect]
     Active Substance: ERGOCALCIFEROL
     Dosage: 1 DF, 1 X/WEEK
     Dates: start: 20160902
  4. TRIAMTERENE. [Concomitant]
     Active Substance: TRIAMTERENE
  5. LOSARTAN. [Concomitant]
     Active Substance: LOSARTAN
  6. LEXAPRO [Concomitant]
     Active Substance: ESCITALOPRAM OXALATE

REACTIONS (8)
  - Hyperhidrosis [Recovered/Resolved]
  - Flatulence [Recovering/Resolving]
  - Decreased appetite [Recovering/Resolving]
  - Abdominal pain upper [Recovered/Resolved]
  - Fatigue [Unknown]
  - Pruritus [Recovering/Resolving]
  - Chills [Recovered/Resolved]
  - Bowel movement irregularity [Recovering/Resolving]

NARRATIVE: CASE EVENT DATE: 20160916
